FAERS Safety Report 11809458 (Version 1)
Quarter: 2015Q4

REPORT INFORMATION
  Report Type: Spontaneous
  Country: VE (occurrence: VE)
  Receive Date: 20151208
  Receipt Date: 20151208
  Transmission Date: 20160305
  Serious: Yes (Other)
  Sender: FDA-Public Use
  Company Number: VE-ROCHE-1673508

PATIENT
  Sex: Female

DRUGS (2)
  1. GENTEAL (HYPROMELLOSE) [Concomitant]
  2. LUCENTIS [Suspect]
     Active Substance: RANIBIZUMAB
     Indication: AGE-RELATED MACULAR DEGENERATION
     Route: 050

REACTIONS (4)
  - Retinal exudates [Not Recovered/Not Resolved]
  - Product use issue [Unknown]
  - Age-related macular degeneration [Not Recovered/Not Resolved]
  - Retinal haemorrhage [Not Recovered/Not Resolved]
